FAERS Safety Report 15401695 (Version 1)
Quarter: 2018Q3

REPORT INFORMATION
  Report Type: Spontaneous
  Country: US (occurrence: US)
  Receive Date: 20180919
  Receipt Date: 20180919
  Transmission Date: 20181010
  Serious: No
  Sender: FDA-Public Use
  Company Number: US-PFIZER INC-2018376761

PATIENT
  Age: 61 Year
  Sex: Male
  Weight: 81.65 kg

DRUGS (2)
  1. ADVIL [Suspect]
     Active Substance: IBUPROFEN
     Indication: ARTHRALGIA
     Dosage: 600 MG, 2X/DAY(200MG, THREE CAPLETS, BY MOUTH, USUALLY TWICE A DAY)
     Route: 048
  2. ADVIL [Suspect]
     Active Substance: IBUPROFEN
     Dosage: DECREASED DOWN TO 200MG 2 CAPLETS, THEN TOOK 1 MORE CAPLET
     Route: 048
     Dates: start: 20180913

REACTIONS (5)
  - Hyperhidrosis [Recovering/Resolving]
  - Drug ineffective [Unknown]
  - Intentional product misuse [Unknown]
  - Nausea [Unknown]
  - Dizziness [Not Recovered/Not Resolved]

NARRATIVE: CASE EVENT DATE: 201809
